FAERS Safety Report 9508504 (Version 4)
Quarter: 2014Q1

REPORT INFORMATION
  Report Type: Spontaneous
  Country: US (occurrence: US)
  Receive Date: 20130909
  Receipt Date: 20140227
  Transmission Date: 20141002
  Serious: No
  Sender: FDA-Public Use
  Company Number: US-PFIZER INC-2013257757

PATIENT
  Age: 52 Year
  Sex: Female
  Weight: 67.69 kg

DRUGS (21)
  1. LYRICA [Suspect]
     Indication: FIBROMYALGIA
     Dosage: 200 MG, 1X/DAY (AT BEDTIME)
     Dates: start: 20111018
  2. LYRICA [Suspect]
     Dosage: 200 MG, 1X/DAY
     Dates: end: 201308
  3. DICLOFENAC [Concomitant]
     Dosage: UNK
  4. CLONIDINE [Concomitant]
     Dosage: UNK
  5. TRAZODONE HYDROCHLORIDE [Concomitant]
     Dosage: 200 MG, 1X/DAY (HS)
     Route: 048
  6. TRAZODONE HYDROCHLORIDE [Concomitant]
     Dosage: 300 MG, 1X/DAY (HS)
     Route: 048
     Dates: start: 20140218
  7. FLUOXETINE HCL [Concomitant]
     Dosage: 20 MG, DAILY (ONE DAILY IN THE MORNING)
     Dates: start: 20110727
  8. BACLOFEN [Concomitant]
     Dosage: 15 MG, 3X/DAY
     Dates: start: 20110727
  9. ESTRING [Concomitant]
     Dosage: 2 MG, EVERY 90 DAYS
     Route: 067
     Dates: start: 20130625
  10. HYDROCODONE W/ACETAMINOPHEN [Concomitant]
     Indication: PAIN
     Dosage: HYDROCODONE BITARTRATE 10MG/ PARACETAMOL 325MG, ONE TABLET TWICE DAILY AS NEEDING
     Dates: start: 20111115
  11. HYDROCODONE W/ACETAMINOPHEN [Concomitant]
     Dosage: HYDROCODONE BITARTRATE 10MG/ PARACETAMOL 325MG, ONE TABLET PO BID PRN
     Route: 048
     Dates: start: 20130806
  12. TRETINOIN [Concomitant]
     Dosage: 0.025 %,1X/DAY (IN EVENING)
     Route: 061
     Dates: start: 20130625
  13. NORTRIPTYLINE HYDROCHLORIDE [Concomitant]
     Dosage: 10 MG, 1X/DAY (QHS)
     Route: 048
  14. FOLIC ACID [Concomitant]
     Dosage: 400 UG, 1X/DAY
     Route: 048
     Dates: start: 20130731
  15. PANTOTHENIC ACID [Concomitant]
     Dosage: 100 MG, 1X/DAY
     Route: 048
     Dates: start: 20130731
  16. COQ 10 [Concomitant]
     Dosage: 30 MG, 1X/DAY
     Route: 048
     Dates: start: 20130731
  17. B-12 [Concomitant]
     Dosage: 1000 UG, 1X/DAY
     Route: 048
     Dates: start: 20130731
  18. CALCIUM 600+D3 [Concomitant]
     Dosage: 1 DF, 1X/DAY
     Route: 048
     Dates: start: 20130731
  19. VITAMIN D3 [Concomitant]
     Dosage: 1000 IU, 1X/DAY
     Route: 048
     Dates: start: 20130731
  20. GLUCOSAMINE CHONDR 1500 COMPLX [Concomitant]
     Dosage: 1 DF, 1X/DAY
     Route: 048
     Dates: start: 20130731
  21. FLU VACCINE [Concomitant]
     Dosage: UNK
     Dates: start: 20131224

REACTIONS (7)
  - Drug withdrawal syndrome [Not Recovered/Not Resolved]
  - Hyperhidrosis [Not Recovered/Not Resolved]
  - Chills [Not Recovered/Not Resolved]
  - Asthenia [Not Recovered/Not Resolved]
  - General physical condition abnormal [Unknown]
  - Somnolence [Unknown]
  - Arthralgia [Unknown]
